FAERS Safety Report 4789841-9 (Version None)
Quarter: 2005Q4

REPORT INFORMATION
  Report Type: 
  Country: None (occurrence: None)
  Receive Date: 20051006
  Receipt Date: 20050411
  Transmission Date: 20060501
  Serious: Yes (Other)
  Sender: FDA-Public Use
  Company Number: PHBS2005BR05178

PATIENT
  Age: 28 Year
  Sex: Female

DRUGS (2)
  1. TRILEPTAL [Suspect]
     Indication: TRIGEMINAL NEURALGIA
     Dosage: 1500 MG/D
     Route: 048
     Dates: start: 20050404
  2. TRILEPTAL [Suspect]
     Route: 048

REACTIONS (4)
  - CAESAREAN SECTION [None]
  - DRUG EXPOSURE DURING PREGNANCY [None]
  - SOMNOLENCE [None]
  - THROMBOCYTOPENIA [None]
